FAERS Safety Report 17091293 (Version 2)
Quarter: 2021Q1

REPORT INFORMATION
  Report Type: Spontaneous
  Country: US (occurrence: US)
  Receive Date: 20191129
  Receipt Date: 20210211
  Transmission Date: 20210419
  Serious: Yes (Death)
  Sender: FDA-Public Use
  Company Number: US-TEVA-2019-US-1142608

PATIENT
  Age: 89 Year
  Sex: Female
  Weight: 40.8 kg

DRUGS (10)
  1. VALSARTAN AUROBINDO [Suspect]
     Active Substance: VALSARTAN
     Indication: HYPERTENSION
     Dosage: DOSAGE : 80 MG
     Dates: start: 20160425, end: 20160525
  2. PRAVASTATIN SODIUM. [Concomitant]
     Active Substance: PRAVASTATIN SODIUM
     Indication: BLOOD CHOLESTEROL INCREASED
     Dosage: 40 MILLIGRAM DAILY;
     Dates: start: 20140617, end: 20170806
  3. CHLORTHALIDONE. [Concomitant]
     Active Substance: CHLORTHALIDONE
     Indication: HYPERTENSION
     Dosage: 25 MILLIGRAM DAILY;
     Dates: start: 20160620, end: 20170716
  4. VALSARTAN SOLCO [Suspect]
     Active Substance: VALSARTAN
     Dosage: DOSAGE : 80MG
     Dates: start: 20170103, end: 20170403
  5. BENAZEPRIL [Concomitant]
     Active Substance: BENAZEPRIL HYDROCHLORIDE
     Indication: HYPERTENSION
     Dosage: 50 MILLIGRAM DAILY;
     Dates: start: 20140617, end: 20160814
  6. HYDROCHLOROTHIAZIDE. [Concomitant]
     Active Substance: HYDROCHLOROTHIAZIDE
     Indication: HYPERTENSION
     Dosage: 12.5 MILLIGRAM DAILY;
     Dates: start: 20140617, end: 20160204
  7. ALENDRONATE [Concomitant]
     Active Substance: ALENDRONATE SODIUM
     Indication: OSTEOPOROSIS
     Dosage: 70 MILLIGRAM DAILY;
     Dates: start: 20161018, end: 20170806
  8. VALSARTAN TORRENT [Suspect]
     Active Substance: VALSARTAN
     Indication: HYPERTENSION
     Dosage: DOSAGE : 80 MG
     Dates: start: 20160620, end: 20160918
  9. VALSARTAN SOLCO [Suspect]
     Active Substance: VALSARTAN
     Indication: HYPERTENSION
     Dosage: DOSAGE : 80 MG
     Dates: start: 20170417, end: 20170716
  10. VALSARTAN CAMBER [Suspect]
     Active Substance: VALSARTAN
     Indication: HYPERTENSION
     Dosage: DOSAGE : 80 MG
     Dates: start: 20160916, end: 20161215

REACTIONS (2)
  - Colorectal cancer [Fatal]
  - Hepatic cancer [Fatal]
